FAERS Safety Report 9222250 (Version 1)
Quarter: 2013Q1

REPORT INFORMATION
  Report Type: Spontaneous
  Country: US (occurrence: None)
  Receive Date: 20120914
  Receipt Date: 20120914
  Transmission Date: 20140127
  Serious: Yes (Other)
  Sender: FDA-Public Use
  Company Number: JPI-P-020666

PATIENT
  Age: 45 Year
  Sex: Female
  Weight: 90.72 kg

DRUGS (4)
  1. XYREM [Suspect]
     Indication: INSOMNIA
     Route: 048
     Dates: start: 20051202
  2. LEVOTHYROXINE SODIUM [Concomitant]
  3. DULOXETINE HYDROCHLORIDE [Concomitant]
  4. QUETIAPINE FUMARATE [Concomitant]

REACTIONS (3)
  - Ankle fracture [None]
  - Rash pruritic [None]
  - Rash [None]
